FAERS Safety Report 7235057-6 (Version None)
Quarter: 2011Q1

REPORT INFORMATION
  Report Type: 
  Country: None (occurrence: None)
  Receive Date: 20110120
  Receipt Date: 20110110
  Transmission Date: 20110831
  Serious: Yes (Death, Life-Threatening, Hospitalization, Other)
  Sender: FDA-Public Use
  Company Number: US-GENZYME-CLOF-1001297

PATIENT
  Sex: Female
  Weight: 48.6 kg

DRUGS (40)
  1. VERSED [Concomitant]
     Indication: PRODUCT USED FOR UNKNOWN INDICATION
     Dosage: 20 MG, UNK
     Route: 042
     Dates: start: 20100928
  2. OMNIPAQUE 140 [Concomitant]
     Indication: SCAN WITH CONTRAST
     Dosage: 20.8 ML, UNK
     Route: 065
     Dates: start: 20100929
  3. BENADRYL [Concomitant]
     Dosage: 50 MG, ONCE
     Route: 042
     Dates: start: 20101005, end: 20101005
  4. TRANSDERM [Concomitant]
     Indication: PRODUCT USED FOR UNKNOWN INDICATION
     Dosage: 1.5 MG, UNK
     Route: 062
     Dates: start: 20101002, end: 20101120
  5. VERSED [Concomitant]
     Dosage: 4.9 MG, ONCE
     Route: 042
     Dates: start: 20101005
  6. CYCLOPHOSPHAMIDE [Suspect]
     Indication: ACUTE MYELOID LEUKAEMIA
     Dosage: 600 MG, QDX5
     Route: 065
     Dates: start: 20100929, end: 20101003
  7. ATIVAN [Concomitant]
     Indication: PRODUCT USED FOR UNKNOWN INDICATION
     Dosage: 0.5 MG, QID
     Route: 042
     Dates: start: 20101001, end: 20101005
  8. VERSED [Concomitant]
     Dosage: 2 MG, UNK
     Route: 042
     Dates: start: 20101029, end: 20101029
  9. HYDROCORTISONE [Concomitant]
     Dosage: 17 MG, UNK
     Route: 042
     Dates: start: 20101101, end: 20101108
  10. ALLOPURINOL [Concomitant]
     Indication: PRODUCT USED FOR UNKNOWN INDICATION
     Dosage: 250 MG, UNK
     Route: 065
     Dates: start: 20100928, end: 20101004
  11. ZOFRAN [Concomitant]
     Indication: PRODUCT USED FOR UNKNOWN INDICATION
     Dosage: 8 MG, Q4HR
     Route: 042
     Dates: start: 20100930, end: 20101005
  12. SCOPOLAMINE [Concomitant]
     Indication: PRODUCT USED FOR UNKNOWN INDICATION
     Dosage: 1 PATCH, Q3D
     Route: 062
     Dates: start: 20101002
  13. BENADRYL [Concomitant]
     Dosage: 25 MG, ONCE
     Route: 048
     Dates: start: 20101005, end: 20101005
  14. CYTOXAN [Suspect]
     Indication: PRODUCT USED FOR UNKNOWN INDICATION
     Dosage: 600 MG, UNK
     Route: 065
     Dates: start: 20100929, end: 20101003
  15. OPTIRAY 350 [Concomitant]
     Indication: PRODUCT USED FOR UNKNOWN INDICATION
     Dosage: 1.5 ML, UNK
     Route: 065
     Dates: start: 20100929
  16. BUMEX [Concomitant]
     Indication: BLOOD CREATININE INCREASED
     Dosage: 1 MG, UNK
     Route: 065
     Dates: start: 20101001
  17. ACETAMINOPHEN [Concomitant]
     Dosage: 500 MG, UNK
     Route: 065
     Dates: start: 20101001, end: 20101101
  18. CLOLAR [Suspect]
     Indication: ACUTE MYELOID LEUKAEMIA
     Dosage: 55 MG, QDX5
     Route: 042
     Dates: start: 20100929, end: 20101003
  19. CYTARABINE [Suspect]
     Indication: PRODUCT USED FOR UNKNOWN INDICATION
     Dosage: 70 MG, ONCE
     Route: 037
     Dates: start: 20100928, end: 20100928
  20. ETOPOSIDE [Suspect]
     Indication: ACUTE MYELOID LEUKAEMIA
     Dosage: 140 MG, QDX5
     Route: 042
     Dates: start: 20100929, end: 20101003
  21. ACETAMINOPHEN [Concomitant]
     Indication: PRODUCT USED FOR UNKNOWN INDICATION
     Dosage: 325 MG, UNK
     Route: 065
     Dates: start: 20100929
  22. SCOPOLAMINE [Concomitant]
     Dosage: 1 PATCH, Q3D
     Route: 062
     Dates: start: 20101005
  23. MEROPENEM [Concomitant]
     Dosage: 950 MG, UNK
     Route: 065
     Dates: start: 20100930, end: 20101004
  24. TYLENOL [Concomitant]
     Dosage: 500 MG, UNK
     Route: 065
     Dates: start: 20101006
  25. ALLOPURINOL [Concomitant]
     Dosage: 125 MG, UNK
     Route: 065
     Dates: start: 20101004
  26. VANCOMYCIN HCL [Concomitant]
     Indication: PRODUCT USED FOR UNKNOWN INDICATION
     Dosage: 750 MG, UNK
     Route: 042
     Dates: start: 20100930, end: 20101004
  27. BACTRIM [Concomitant]
     Indication: PRODUCT USED FOR UNKNOWN INDICATION
     Dosage: 120 MG, UNK
     Route: 042
     Dates: start: 20101001, end: 20101009
  28. BENADRYL [Concomitant]
     Indication: PRODUCT USED FOR UNKNOWN INDICATION
     Dosage: 50 MG, UNK
     Route: 042
     Dates: start: 20101002
  29. BENADRYL [Concomitant]
     Dosage: 24 MG, UNK
     Route: 042
     Dates: start: 20101005, end: 20101128
  30. ACETAMINOPHEN [Concomitant]
     Dosage: 325 MG, UNK
     Route: 065
     Dates: start: 20100903, end: 20101001
  31. HYDROCORTISONE [Concomitant]
     Dosage: 35 MG, UNK
     Route: 042
     Dates: start: 20101101, end: 20101108
  32. TYLENOL [Concomitant]
     Indication: PRODUCT USED FOR UNKNOWN INDICATION
     Dosage: 15 MG/KG, UNK
     Route: 065
     Dates: start: 20100928
  33. ALLOPURINOL [Concomitant]
     Dosage: 250 MG, UNK
     Route: 065
     Dates: start: 20100930
  34. ATIVAN [Concomitant]
     Dosage: 950 MG, UNK
     Route: 042
     Dates: start: 20101001, end: 20101005
  35. HYDROCORTISONE [Concomitant]
     Indication: PREMEDICATION
     Dosage: 950 MG, UNK
     Route: 065
     Dates: start: 20101001, end: 20101003
  36. TYLENOL [Concomitant]
     Dosage: 650 MG, UNK
     Route: 065
     Dates: start: 20101002, end: 20101005
  37. TYLENOL [Concomitant]
     Dosage: 650 MG, UNK
     Route: 065
     Dates: start: 20100930
  38. RASBURICASE [Concomitant]
     Indication: PRODUCT USED FOR UNKNOWN INDICATION
     Dosage: 6 MG, UNK
     Route: 042
     Dates: start: 20100928
  39. MEROPENEM [Concomitant]
     Indication: PRODUCT USED FOR UNKNOWN INDICATION
     Dosage: 20 MG/KG, Q12HR
     Route: 042
     Dates: start: 20100930
  40. MICAFUNGIN [Concomitant]
     Indication: PRODUCT USED FOR UNKNOWN INDICATION
     Dosage: 150 MG, UNK
     Route: 042
     Dates: start: 20100930, end: 20101001

REACTIONS (9)
  - DEATH [None]
  - INFECTION [None]
  - RENAL FAILURE [None]
  - HYPOTENSION [None]
  - TRANSAMINASES INCREASED [None]
  - FEBRILE NEUTROPENIA [None]
  - VENTRICULAR DYSFUNCTION [None]
  - RESPIRATORY FAILURE [None]
  - COAGULOPATHY [None]
